FAERS Safety Report 9066487 (Version 3)
Quarter: 2013Q2

REPORT INFORMATION
  Report Type: Spontaneous
  Country: DE (occurrence: DE)
  Receive Date: 20130214
  Receipt Date: 20130425
  Transmission Date: 20140414
  Serious: Yes (Life-Threatening, Hospitalization)
  Sender: FDA-Public Use
  Company Number: DE-BRISTOL-MYERS SQUIBB COMPANY-17356452

PATIENT
  Sex: Male

DRUGS (1)
  1. REYATAZ CAPS [Suspect]

REACTIONS (1)
  - Cardiac disorder [Unknown]
